FAERS Safety Report 15706563 (Version 2)
Quarter: 2018Q4

REPORT INFORMATION
  Report Type: Spontaneous
  Country: DE (occurrence: DE)
  Receive Date: 20181210
  Receipt Date: 20181218
  Transmission Date: 20190205
  Serious: Yes (Death, Life-Threatening, Hospitalization, Other)
  Sender: FDA-Public Use
  Company Number: DE-PFIZER INC-2018506907

PATIENT
  Age: 70 Year
  Sex: Female

DRUGS (5)
  1. FLUOROURACIL. [Suspect]
     Active Substance: FLUOROURACIL
     Indication: INVASIVE PAPILLARY BREAST CARCINOMA
     Dosage: UNK, CYCLIC, (6 CYCLES)
     Dates: start: 2004
  2. CYCLOPHOSPHAMIDE. [Suspect]
     Active Substance: CYCLOPHOSPHAMIDE
     Indication: INVASIVE PAPILLARY BREAST CARCINOMA
     Dosage: UNK, CYCLIC, (6 CYCLES)
     Dates: start: 2004
  3. METHOTREXATE SODIUM. [Suspect]
     Active Substance: METHOTREXATE SODIUM
     Indication: PSORIASIS
     Dosage: UNK, CYCLIC, (6 CYCLES)
     Dates: start: 2004
  4. METHOTREXATE SODIUM. [Suspect]
     Active Substance: METHOTREXATE SODIUM
     Indication: INVASIVE PAPILLARY BREAST CARCINOMA
     Dosage: UNK
     Dates: start: 1984
  5. CICLOSPORIN [Concomitant]
     Active Substance: CYCLOSPORINE
     Indication: PSORIASIS
     Dosage: UNK
     Dates: start: 1984

REACTIONS (1)
  - Myelodysplastic syndrome [Fatal]
